FAERS Safety Report 19129451 (Version 1)
Quarter: 2021Q2

REPORT INFORMATION
  Report Type: Spontaneous
  Country: FR (occurrence: FR)
  Receive Date: 20210413
  Receipt Date: 20210413
  Transmission Date: 20210717
  Serious: Yes (Hospitalization, Other)
  Sender: FDA-Public Use
  Company Number: FR-MYLANLABS-2021M1022022

PATIENT
  Age: 54 Year
  Sex: Female
  Weight: 69 kg

DRUGS (6)
  1. LEVOTHYROX [Concomitant]
     Active Substance: LEVOTHYROXINE
     Dosage: UNK
  2. ACYCLOVIR 200 MG TABLET [Suspect]
     Active Substance: ACYCLOVIR
     Indication: PRODUCT USED FOR UNKNOWN INDICATION
     Dosage: 200 MILLIGRAM, BID
     Route: 048
     Dates: start: 20090619
  3. ZELITREX [Suspect]
     Active Substance: VALACYCLOVIR HYDROCHLORIDE
     Indication: HERPES ZOSTER
     Dosage: UNK UNK, 3XW
     Route: 048
     Dates: start: 20090609, end: 20090616
  4. POLARAMINE [Concomitant]
     Active Substance: DEXCHLORPHENIRAMINE MALEATE
     Dosage: UNK
  5. LUTENYL [Concomitant]
     Active Substance: NOMEGESTROL ACETATE
     Dosage: UNK
  6. KESTIN [Concomitant]
     Active Substance: EBASTINE
     Dosage: UNK

REACTIONS (5)
  - Rash maculo-papular [Unknown]
  - Drug hypersensitivity [Recovered/Resolved]
  - Basal cell carcinoma [Not Recovered/Not Resolved]
  - Pain of skin [Unknown]
  - Urticaria [Recovered/Resolved]

NARRATIVE: CASE EVENT DATE: 2009
